FAERS Safety Report 15320686 (Version 2)
Quarter: 2018Q4

REPORT INFORMATION
  Report Type: Spontaneous
  Country: ES (occurrence: ES)
  Receive Date: 20180827
  Receipt Date: 20180827
  Transmission Date: 20190204
  Serious: Yes (Hospitalization)
  Sender: FDA-Public Use
  Company Number: PHHY2018ES077004

PATIENT
  Age: 59 Year
  Sex: Female

DRUGS (6)
  1. AMPICILINA SODICA [Concomitant]
     Indication: URINARY TRACT INFECTION BACTERIAL
     Dosage: 2 G, UNK
     Route: 042
     Dates: start: 20170809, end: 20170809
  2. CEFTAZIDIMA [Concomitant]
     Active Substance: CEFTAZIDIME
     Indication: URINARY TRACT INFECTION BACTERIAL
     Dosage: 2 G, UNK
     Route: 042
     Dates: start: 20170809, end: 20170809
  3. CEFIXIMA DOCTA [Suspect]
     Active Substance: CEFIXIME
     Indication: URINARY TRACT INFECTION BACTERIAL
     Dosage: 400 MG, UNK
     Route: 048
     Dates: start: 20170805, end: 20170809
  4. CIPROFLOXACIN. [Interacting]
     Active Substance: CIPROFLOXACIN
     Indication: URINARY TRACT INFECTION BACTERIAL
     Dosage: 1 G, UNK
     Route: 048
     Dates: start: 20170815, end: 20170824
  5. AUGMENTINE [Suspect]
     Active Substance: AMOXICILLIN\CLAVULANATE POTASSIUM
     Indication: URINARY TRACT INFECTION BACTERIAL
     Dosage: 1 DF, UNK
     Route: 042
     Dates: start: 20170811, end: 20170814
  6. CEFTRIAXONA [Concomitant]
     Active Substance: CEFTRIAXONE
     Indication: URINARY TRACT INFECTION BACTERIAL
     Dosage: 1 G, UNK
     Route: 042
     Dates: start: 20170809, end: 20170809

REACTIONS (1)
  - Clostridium difficile colitis [Recovered/Resolved]

NARRATIVE: CASE EVENT DATE: 20170831
